FAERS Safety Report 23891699 (Version 1)
Quarter: 2024Q2

REPORT INFORMATION
  Report Type: Spontaneous
  Country: US (occurrence: US)
  Receive Date: 20240524
  Receipt Date: 20240524
  Transmission Date: 20240715
  Serious: Yes (Other)
  Sender: FDA-Public Use
  Company Number: None

PATIENT

DRUGS (1)
  1. DOXYCYCLINE [Suspect]
     Active Substance: DOXYCYCLINE\DOXYCYCLINE HYCLATE
     Indication: Urinary tract infection
     Dosage: 1 DOSAGE FORM
     Route: 048

REACTIONS (2)
  - Syncope [Unknown]
  - Intentional product use issue [Recovered/Resolved]
